FAERS Safety Report 14687469 (Version 1)
Quarter: 2018Q1

REPORT INFORMATION
  Report Type: Spontaneous
  Country: DE (occurrence: DE)
  Receive Date: 20180328
  Receipt Date: 20180328
  Transmission Date: 20180509
  Serious: Yes (Hospitalization)
  Sender: FDA-Public Use
  Company Number: DE-BAUSCH-BL-2018-007265

PATIENT
  Age: 80 Year
  Sex: Male
  Weight: 106 kg

DRUGS (26)
  1. REVLIMID [Suspect]
     Active Substance: LENALIDOMIDE
     Route: 048
     Dates: start: 20170519
  2. NOVAMIN [Concomitant]
     Indication: SCIATICA
     Dosage: DAILY DOSE: 3 (UNIT NOT REPORTED)
     Route: 048
     Dates: start: 20170210
  3. REVLIMID [Suspect]
     Active Substance: LENALIDOMIDE
     Dosage: DOSE REDUCED
     Route: 048
     Dates: start: 20170421
  4. REVLIMID [Suspect]
     Active Substance: LENALIDOMIDE
     Route: 048
     Dates: start: 20170811
  5. TAMSULOSIN [Concomitant]
     Active Substance: TAMSULOSIN
     Indication: BENIGN PROSTATIC HYPERPLASIA
     Route: 048
  6. RAMIPRIL. [Concomitant]
     Active Substance: RAMIPRIL
     Indication: HYPERTENSION
     Route: 048
  7. METAMIZOLE SODIUM [Concomitant]
     Active Substance: METAMIZOLE SODIUM
     Indication: SCIATICA
     Dosage: DAILY DOSE: 4 (UNIT NOT REPORTED), 40 GTT
     Route: 048
     Dates: start: 20161114
  8. LAXOFALK [Concomitant]
     Indication: CONSTIPATION
     Dosage: 25 DROPS
     Route: 048
     Dates: start: 20170310
  9. INSUMAN COMB [Concomitant]
     Active Substance: INSULIN HUMAN
     Indication: TYPE 2 DIABETES MELLITUS
     Route: 058
  10. DEXAMETHASONE. [Suspect]
     Active Substance: DEXAMETHASONE
     Route: 065
     Dates: start: 20170519
  11. REVLIMID [Suspect]
     Active Substance: LENALIDOMIDE
     Route: 048
     Dates: start: 20170310
  12. TILIDIN [Concomitant]
     Active Substance: NALOXONE HYDROCHLORIDE\TILIDINE HYDROCHLORIDE
     Indication: SCIATICA
     Route: 048
     Dates: start: 20170224
  13. NOVALGINA [Concomitant]
     Active Substance: METAMIZOLE SODIUM
     Indication: OSTEOARTHRITIS
     Dosage: DAILY DOSE: 3 (UNIT NOT REPORTED)
     Route: 048
     Dates: start: 20170905
  14. COTRIM FORTE [Concomitant]
     Active Substance: SULFAMETHOXAZOLE\TRIMETHOPRIM
     Indication: INFECTION PROPHYLAXIS
     Dosage: TOTAL DOSE: 2880 MG (IN WEEK)
     Route: 048
     Dates: start: 20161208
  15. TOREM [Concomitant]
     Active Substance: TORSEMIDE
     Indication: OEDEMA PERIPHERAL
     Route: 048
     Dates: start: 20170519
  16. DEXAMETHASONE. [Suspect]
     Active Substance: DEXAMETHASONE
     Indication: PLASMA CELL MYELOMA
     Route: 065
     Dates: start: 20161117
  17. DEXAMETHASONE. [Suspect]
     Active Substance: DEXAMETHASONE
     Route: 065
     Dates: start: 20170512
  18. PANTOPRAZOLE [Concomitant]
     Active Substance: PANTOPRAZOLE
     Indication: GASTROINTESTINAL DISORDER THERAPY
     Route: 048
     Dates: start: 20161114
  19. DEXAMETHASONE. [Suspect]
     Active Substance: DEXAMETHASONE
     Route: 065
     Dates: start: 20171201
  20. MIRTAZAPINE. [Concomitant]
     Active Substance: MIRTAZAPINE
     Indication: AGITATION
     Route: 048
  21. LYRICA [Concomitant]
     Active Substance: PREGABALIN
     Indication: OSTEOARTHRITIS
     Route: 048
     Dates: start: 20170929
  22. BISOPROLOL [Concomitant]
     Active Substance: BISOPROLOL
     Indication: HYPERTENSION
     Route: 048
  23. REVLIMID [Suspect]
     Active Substance: LENALIDOMIDE
     Indication: PLASMA CELL MYELOMA
     Route: 048
     Dates: start: 20161117
  24. LAXOBERAL [Concomitant]
     Active Substance: SODIUM PICOSULFATE
     Indication: CONSTIPATION
     Dosage: DAILY DOSE: 1 (UNIT NOT REPORTED), 25GTT
     Route: 048
     Dates: start: 20170310
  25. ENOXAPARIN [Concomitant]
     Active Substance: ENOXAPARIN
     Indication: THROMBOSIS PROPHYLAXIS
     Route: 058
     Dates: start: 20161114
  26. BONDRONAT [Concomitant]
     Active Substance: IBANDRONIC ACID
     Indication: SCIATICA
     Dosage: (4 WEEK)
     Route: 041
     Dates: start: 20161124

REACTIONS (1)
  - Peripheral arterial occlusive disease [Recovered/Resolved]

NARRATIVE: CASE EVENT DATE: 20171208
